FAERS Safety Report 6289377-2 (Version None)
Quarter: 2009Q3

REPORT INFORMATION
  Report Type: 
  Country: None (occurrence: None)
  Receive Date: 20090728
  Receipt Date: 20090728
  Transmission Date: 20100115
  Serious: Yes (Other)
  Sender: FDA-Public Use
  Company Number: None

PATIENT
  Age: 63 Year
  Sex: Female
  Weight: 71.6683 kg

DRUGS (1)
  1. RESTASIS [Suspect]
     Indication: DRY EYE
     Dosage: 1 DROP 2XD OPTHALMIC
     Route: 047
     Dates: start: 20090717, end: 20090717

REACTIONS (4)
  - CHEMICAL EYE INJURY [None]
  - EYE IRRITATION [None]
  - EYE PAIN [None]
  - EYE SWELLING [None]
